FAERS Safety Report 4404680-6 (Version None)
Quarter: 2004Q3

REPORT INFORMATION
  Report Type: 
  Country: None (occurrence: None)
  Receive Date: 20040722
  Receipt Date: 20031121
  Transmission Date: 20050211
  Serious: Yes (Hospitalization)
  Sender: FDA-Public Use
  Company Number: US-MERCK-0311USA02552

PATIENT
  Age: 46 Year
  Sex: Female
  Weight: 68 kg

DRUGS (14)
  1. VICODIN [Concomitant]
     Indication: PAIN
     Route: 065
     Dates: start: 19990701
  2. SOMA [Concomitant]
     Indication: BACK PAIN
     Route: 065
     Dates: start: 19990101
  3. KLONOPIN [Concomitant]
     Indication: DEPRESSION
     Route: 065
     Dates: start: 19991101, end: 20010101
  4. KLONOPIN [Concomitant]
     Indication: ANXIETY
     Route: 065
     Dates: start: 19991101, end: 20010101
  5. PREMARIN [Concomitant]
     Indication: HORMONE REPLACEMENT THERAPY
     Route: 065
  6. ZESTRIL [Concomitant]
     Indication: CARDIOMYOPATHY
     Route: 065
  7. REMERON [Concomitant]
     Indication: DEPRESSION
     Route: 065
  8. PHENERGAN [Concomitant]
     Indication: NAUSEA
     Route: 065
  9. SEROQUEL [Concomitant]
     Indication: ANXIETY
     Route: 065
  10. RISPERDAL [Concomitant]
     Indication: SLEEP DISORDER
     Route: 065
     Dates: start: 19990101, end: 20030101
  11. VIOXX [Suspect]
     Indication: PAIN MANAGEMENT
     Route: 048
     Dates: start: 19990101, end: 20030301
  12. VIOXX [Suspect]
     Route: 048
     Dates: start: 19990101, end: 20030301
  13. ZOCOR [Concomitant]
     Indication: CEREBROVASCULAR ACCIDENT
     Route: 065
  14. EFFEXOR XR [Concomitant]
     Indication: DEPRESSION
     Route: 065
     Dates: start: 19991101

REACTIONS (13)
  - ACCIDENT [None]
  - ANXIETY [None]
  - BACK PAIN [None]
  - CARDIOMYOPATHY [None]
  - CEREBROVASCULAR ACCIDENT [None]
  - DEPRESSION [None]
  - EMOTIONAL DISTRESS [None]
  - INJURY [None]
  - INSOMNIA [None]
  - NAUSEA [None]
  - NERVE GRAFT [None]
  - NEUROPATHY [None]
  - SLEEP DISORDER [None]
